FAERS Safety Report 6971864-2 (Version None)
Quarter: 2010Q3

REPORT INFORMATION
  Report Type: 
  Country: None (occurrence: None)
  Receive Date: 20100908
  Receipt Date: 20100908
  Transmission Date: 20110219
  Serious: Yes (Other)
  Sender: FDA-Public Use
  Company Number: None

PATIENT
  Age: 59 Year
  Sex: Female
  Weight: 70 kg

DRUGS (1)
  1. EVISTA [Suspect]
     Indication: OSTEOPENIA
     Dates: start: 20100501, end: 20100801

REACTIONS (3)
  - CIRCADIAN RHYTHM SLEEP DISORDER [None]
  - INSOMNIA [None]
  - MUSCLE SPASMS [None]
